FAERS Safety Report 23805675 (Version 2)
Quarter: 2024Q2

REPORT INFORMATION
  Report Type: Spontaneous
  Country: ES (occurrence: ES)
  Receive Date: 20240502
  Receipt Date: 20240520
  Transmission Date: 20240715
  Serious: Yes (Other)
  Sender: FDA-Public Use
  Company Number: ES-JNJFOC-20240476221

PATIENT
  Age: 28 Year
  Sex: Male

DRUGS (15)
  1. SPRAVATO [Suspect]
     Active Substance: ESKETAMINE
     Indication: Depression
     Dates: start: 20230210
  2. DULOXETINE [Concomitant]
     Active Substance: DULOXETINE
     Dosage: 1-0-0
     Route: 065
  3. BUPROPION HYDROCHLORIDE [Concomitant]
     Active Substance: BUPROPION HYDROCHLORIDE
     Dosage: 1-0-0
     Route: 065
  4. LAMOTRIGINE [Concomitant]
     Active Substance: LAMOTRIGINE
     Dosage: 0-0-1
     Route: 065
  5. DIAZEPAM [Concomitant]
     Active Substance: DIAZEPAM
     Dosage: IF ANXIETY (MAX 3 PER DAY)
  6. LORMETAZEPAM [Concomitant]
     Active Substance: LORMETAZEPAM
     Dosage: 1/2 OR 1 IN CASE OF INSOMNIA
     Route: 065
  7. BUPROPION [Concomitant]
     Active Substance: BUPROPION
  8. VORTIOXETINE [Concomitant]
     Active Substance: VORTIOXETINE
  9. VENLAFAXINE [Concomitant]
     Active Substance: VENLAFAXINE HYDROCHLORIDE
  10. FLUOXETINE [Concomitant]
     Active Substance: FLUOXETINE HYDROCHLORIDE
  11. GABAPENTIN [Concomitant]
     Active Substance: GABAPENTIN
  12. PALIPERIDONE [Concomitant]
     Active Substance: PALIPERIDONE
  13. TOPIRAMATE [Concomitant]
     Active Substance: TOPIRAMATE
  14. ZONISAMIDE [Concomitant]
     Active Substance: ZONISAMIDE
  15. QUETIAPINE [Concomitant]
     Active Substance: QUETIAPINE

REACTIONS (1)
  - Drug dependence [Not Recovered/Not Resolved]

NARRATIVE: CASE EVENT DATE: 20230201
